FAERS Safety Report 5982135-5 (Version None)
Quarter: 2008Q4

REPORT INFORMATION
  Report Type: 
  Country: None (occurrence: None)
  Receive Date: 20081202
  Receipt Date: 20081118
  Transmission Date: 20090506
  Serious: Yes (Hospitalization)
  Sender: FDA-Public Use
  Company Number: CLOF-1000347

PATIENT
  Age: 55 Year
  Sex: Male

DRUGS (1)
  1. CLOLAR [Suspect]
     Indication: ACUTE LEUKAEMIA
     Dosage: MG/DAY, QD, INTRAVENOUS
     Route: 042

REACTIONS (8)
  - APLASIA [None]
  - BRONCHOPULMONARY ASPERGILLOSIS [None]
  - CENTRAL NERVOUS SYSTEM INFECTION [None]
  - COMA [None]
  - CONFUSIONAL STATE [None]
  - HALLUCINATION [None]
  - HERPES ZOSTER [None]
  - PSEUDOMONAL SEPSIS [None]
